FAERS Safety Report 8522652-7 (Version None)
Quarter: 2012Q3

REPORT INFORMATION
  Report Type: 
  Country: None (occurrence: None)
  Receive Date: 20120719
  Receipt Date: 20120717
  Transmission Date: 20120928
  Serious: Yes (Hospitalization)
  Sender: FDA-Public Use
  Company Number: US-JNJFOC-20120708370

PATIENT
  Sex: Female
  Weight: 77.11 kg

DRUGS (3)
  1. CELEBREX [Concomitant]
     Indication: ARTHRITIS
     Route: 048
     Dates: start: 20020101
  2. SULFASALAZINE [Concomitant]
     Indication: ARTHRITIS
     Route: 048
     Dates: start: 20070101
  3. SIMPONI [Suspect]
     Indication: PSORIATIC ARTHROPATHY
     Route: 058
     Dates: start: 20111201

REACTIONS (3)
  - DEVICE MALFUNCTION [None]
  - UTERINE LEIOMYOMA [None]
  - DRUG DOSE OMISSION [None]
